FAERS Safety Report 15477009 (Version 2)
Quarter: 2018Q4

REPORT INFORMATION
  Report Type: Spontaneous
  Country: JP (occurrence: JP)
  Receive Date: 20181009
  Receipt Date: 20181218
  Transmission Date: 20190205
  Serious: Yes (Hospitalization)
  Sender: FDA-Public Use
  Company Number: JP-ROCHE-2196301

PATIENT
  Age: 77 Year
  Sex: Male

DRUGS (11)
  1. ALECENSA [Suspect]
     Active Substance: ALECTINIB HYDROCHLORIDE
     Indication: NON-SMALL CELL LUNG CANCER
     Route: 048
     Dates: start: 20180904, end: 20180912
  2. SALOBEL [Concomitant]
     Active Substance: ALLOPURINOL
     Dosage: DOSAGE IS UNCERTAIN.
     Route: 065
  3. TAMSULOSIN HYDROCHLORIDE. [Concomitant]
     Active Substance: TAMSULOSIN HYDROCHLORIDE
     Dosage: DOSAGE IS UNCERTAIN.
     Route: 065
  4. FUROSEMIDE. [Concomitant]
     Active Substance: FUROSEMIDE
     Dosage: DOSAGE IS UNCERTAIN.
     Route: 065
  5. TRAZENTA [Concomitant]
     Active Substance: LINAGLIPTIN
     Dosage: DOSAGE IS UNCERTAIN.
     Route: 065
  6. BROTIZOLAM [Concomitant]
     Active Substance: BROTIZOLAM
     Dosage: DOSAGE IS UNCERTAIN.
     Route: 065
  7. SENNOSIDE [Concomitant]
     Active Substance: SENNOSIDES
     Dosage: DOSAGE IS UNCERTAIN.
     Route: 065
  8. BICALUTAMIDE. [Concomitant]
     Active Substance: BICALUTAMIDE
     Dosage: DOSAGE IS UNCERTAIN.
     Route: 065
  9. BAYASPIRIN [Concomitant]
     Active Substance: ASPIRIN
     Dosage: DOSAGE IS UNCERTAIN.
     Route: 065
  10. LOSARTAN POTASSIUM. [Concomitant]
     Active Substance: LOSARTAN POTASSIUM
     Dosage: DOSAGE IS UNCERTAIN.
     Route: 065
  11. NEXIUM [Concomitant]
     Active Substance: ESOMEPRAZOLE MAGNESIUM
     Dosage: DOSAGE IS UNCERTAIN.
     Route: 065

REACTIONS (1)
  - Renal impairment [Recovered/Resolved]
